FAERS Safety Report 5514863-X (Version None)
Quarter: 2007Q4

REPORT INFORMATION
  Report Type: 
  Country: None (occurrence: None)
  Receive Date: 20071113
  Receipt Date: 20071101
  Transmission Date: 20080405
  Serious: Yes (Other)
  Sender: FDA-Public Use
  Company Number: DE-GENENTECH-251067

PATIENT
  Age: 42 Year
  Sex: Male

DRUGS (1)
  1. MABTHERA [Suspect]
     Indication: LYMPHOMA

REACTIONS (1)
  - TUBERCULOSIS [None]
